FAERS Safety Report 4645056-6 (Version None)
Quarter: 2005Q2

REPORT INFORMATION
  Report Type: 
  Country: None (occurrence: None)
  Receive Date: 20050426
  Receipt Date: 20050417
  Transmission Date: 20051028
  Serious: Yes (Other)
  Sender: FDA-Public Use
  Company Number: GB-ROCHE-402020

PATIENT
  Age: 40 Year
  Sex: Female
  Weight: 97.5 kg

DRUGS (1)
  1. XENICAL [Suspect]
     Indication: OBESITY
     Route: 048
     Dates: start: 20050401, end: 20050402

REACTIONS (1)
  - ANGINA PECTORIS [None]
